FAERS Safety Report 19890306 (Version 2)
Quarter: 2021Q4

REPORT INFORMATION
  Report Type: Spontaneous
  Country: US (occurrence: US)
  Receive Date: 20210927
  Receipt Date: 20211109
  Transmission Date: 20220303
  Serious: Yes (Other)
  Sender: FDA-Public Use
  Company Number: US-PFIZER INC-2021858213

PATIENT
  Age: 59 Year
  Sex: Female
  Weight: 93.89 kg

DRUGS (4)
  1. TRAZIMERA [Suspect]
     Active Substance: TRASTUZUMAB-QYYP
     Indication: Breast cancer
     Dosage: 560.4 MG
     Dates: start: 20210707
  2. TRAZIMERA [Suspect]
     Active Substance: TRASTUZUMAB-QYYP
     Dosage: 560.4 MG, CYCLIC (EVERY 21 DAYS)
     Route: 042
  3. ZIRABEV [Suspect]
     Active Substance: BEVACIZUMAB-BVZR
     Indication: Breast cancer
     Dosage: UNK
  4. TAXOL [Suspect]
     Active Substance: PACLITAXEL
     Indication: Breast cancer
     Dosage: UNK

REACTIONS (1)
  - Wound infection [Recovered/Resolved]
